FAERS Safety Report 16577822 (Version 1)
Quarter: 2019Q3

REPORT INFORMATION
  Report Type: Report from Study
  Country: KE (occurrence: KE)
  Receive Date: 20190716
  Receipt Date: 20190716
  Transmission Date: 20191004
  Serious: Yes (Hospitalization, Other)
  Sender: FDA-Public Use
  Company Number: KE-JNJFOC-20190625966

PATIENT

DRUGS (10)
  1. CYTARABINE. [Suspect]
     Active Substance: CYTARABINE
     Dosage: CONSOLIDATION:  DAYS 1-4,22-25, 29-32
     Route: 058
  2. DOXORUBICIN HYDROCHLORIDE SOLUTION FOR INFUSION [Suspect]
     Active Substance: DOXORUBICIN HYDROCHLORIDE
     Indication: NON-HODGKIN^S LYMPHOMA
     Dosage: INDUCTION ON DAY DAY 1, 21, AND 43
     Route: 042
  3. CYCLOPHOSPHAMIDE. [Suspect]
     Active Substance: CYCLOPHOSPHAMIDE
     Indication: NON-HODGKIN^S LYMPHOMA
     Dosage: CONSOLIDATION: IN SALINE OVER 8 HOURS ON DAY 1 AND 8
     Route: 042
  4. CYCLOPHOSPHAMIDE. [Suspect]
     Active Substance: CYCLOPHOSPHAMIDE
     Dosage: ICONSOLIDATION: IN SALINE OVER 8 HOURS ON DAY 1 AND 8
     Route: 042
  5. METHOTREXATE. [Suspect]
     Active Substance: METHOTREXATE
     Indication: NON-HODGKIN^S LYMPHOMA
     Route: 065
  6. DOXORUBICIN HYDROCHLORIDE SOLUTION FOR INFUSION [Suspect]
     Active Substance: DOXORUBICIN HYDROCHLORIDE
     Dosage: CONSOLIDATION ON DAY 1
     Route: 042
  7. VINCRISTINE [Suspect]
     Active Substance: VINCRISTINE
     Indication: NON-HODGKIN^S LYMPHOMA
     Route: 042
  8. 6-MERCAPTOPURINE MONOHYDRATE [Suspect]
     Active Substance: MERCAPTOPURINE
     Indication: NON-HODGKIN^S LYMPHOMA
     Route: 065
  9. PREDNISOLONE. [Suspect]
     Active Substance: PREDNISOLONE
     Indication: NON-HODGKIN^S LYMPHOMA
     Dosage: INDUCTION: FOR 4 WEEKS TAIL OFF TO ZERO FROM WEEK 5
     Route: 048
  10. PROCARBAZINE [Suspect]
     Active Substance: PROCARBAZINE
     Indication: NON-HODGKIN^S LYMPHOMA
     Route: 065

REACTIONS (22)
  - Pyrexia [Unknown]
  - Varicella [Unknown]
  - Oral candidiasis [Unknown]
  - Insomnia [Unknown]
  - Respiratory tract infection [Unknown]
  - Leukopenia [Unknown]
  - Mucosal inflammation [Unknown]
  - Cystitis [Unknown]
  - Decreased appetite [Unknown]
  - Product use in unapproved indication [Unknown]
  - Dehydration [Unknown]
  - Tinea capitis [Unknown]
  - Constipation [Unknown]
  - Vomiting [Unknown]
  - Weight decreased [Unknown]
  - Pancytopenia [Unknown]
  - Pain [Unknown]
  - Hyponatraemia [Unknown]
  - Cardiomyopathy [Unknown]
  - Anaemia [Unknown]
  - Hyperchlorhydria [Unknown]
  - Off label use [Unknown]
